FAERS Safety Report 6651213-X (Version None)
Quarter: 2010Q1

REPORT INFORMATION
  Report Type: 
  Country: None (occurrence: None)
  Receive Date: 20100322
  Receipt Date: 20100310
  Transmission Date: 20100710
  Serious: Yes (Other)
  Sender: FDA-Public Use
  Company Number: 8052701

PATIENT
  Sex: Male

DRUGS (7)
  1. KEPPRA [Suspect]
     Indication: EPILEPSY
     Dosage: (1250 MG QD, ONCE PER DAY), (750 MG BID ORAL)
     Route: 048
     Dates: start: 20060801
  2. SIMVASTATIN [Concomitant]
  3. OMEPRAZOLE [Concomitant]
  4. LAMOTRIGINE [Concomitant]
  5. ASPIRIN [Concomitant]
  6. UNKNOWN [Concomitant]
  7. ATENOLOL [Concomitant]

REACTIONS (1)
  - RENAL IMPAIRMENT [None]
